FAERS Safety Report 14594649 (Version 1)
Quarter: 2018Q1

REPORT INFORMATION
  Report Type: Spontaneous
  Country: BR (occurrence: BR)
  Receive Date: 20180302
  Receipt Date: 20180302
  Transmission Date: 20180509
  Serious: Yes (Other)
  Sender: FDA-Public Use
  Company Number: BR-BRISTOL-MYERS SQUIBB COMPANY-BMS-2018-018023

PATIENT
  Sex: Male

DRUGS (2)
  1. NIVOLUMAB [Suspect]
     Active Substance: NIVOLUMAB
     Indication: RENAL CANCER
     Dosage: 3 MG/KG, UNK
     Route: 042
  2. IPILIMUMAB [Suspect]
     Active Substance: IPILIMUMAB
     Indication: RENAL CANCER
     Dosage: 1 MG/KG, UNK
     Route: 042

REACTIONS (5)
  - Epididymitis [Unknown]
  - Lymphadenopathy [Unknown]
  - Product use in unapproved indication [Unknown]
  - Pyrexia [Unknown]
  - Infusion related reaction [Unknown]
